FAERS Safety Report 10263688 (Version 1)
Quarter: 2014Q2

REPORT INFORMATION
  Report Type: Spontaneous
  Country: US (occurrence: US)
  Receive Date: 20140626
  Receipt Date: 20140626
  Transmission Date: 20141212
  Serious: No
  Sender: FDA-Public Use
  Company Number: US-ASTRAZENECA-2014SE44597

PATIENT
  Age: 71 Year
  Sex: Male

DRUGS (2)
  1. LISINOPRIL HCTZ [Suspect]
     Dosage: 12.5MG
     Route: 048
  2. PANTOPRAZOLE [Concomitant]
     Indication: GASTROOESOPHAGEAL REFLUX DISEASE

REACTIONS (2)
  - Blood pressure increased [Unknown]
  - Feeling abnormal [Unknown]
